FAERS Safety Report 14876597 (Version 1)
Quarter: 2018Q2

REPORT INFORMATION
  Report Type: Spontaneous
  Country: IN (occurrence: IN)
  Receive Date: 20180510
  Receipt Date: 20180510
  Transmission Date: 20180711
  Serious: Yes (Hospitalization, Other)
  Sender: FDA-Public Use
  Company Number: IN-PFIZER INC-2018189552

PATIENT
  Age: 52 Year
  Sex: Female

DRUGS (1)
  1. CRIZALK [Suspect]
     Active Substance: CRIZOTINIB
     Indication: ALK GENE REARRANGEMENT ASSAY
     Dosage: 250 MG, 2X/DAY
     Route: 048
     Dates: start: 20170308

REACTIONS (5)
  - Blood sodium decreased [Unknown]
  - Peripheral swelling [Unknown]
  - Blood potassium decreased [Unknown]
  - Headache [Unknown]
  - Blindness [Unknown]
